FAERS Safety Report 9492581 (Version 2)
Quarter: 2013Q3

REPORT INFORMATION
  Report Type: Spontaneous
  Country: GB (occurrence: GB)
  Receive Date: 20130830
  Receipt Date: 20130830
  Transmission Date: 20140515
  Serious: Yes (Death, Hospitalization)
  Sender: FDA-Public Use
  Company Number: GB-BAXTER-2013BAX024774

PATIENT
  Age: 75 Year
  Sex: Female

DRUGS (19)
  1. DIANEAL PD4 GLUCOSE 1.36% W/V / 13.6 MG/ML [Suspect]
     Indication: PERITONEAL DIALYSIS
     Route: 033
     Dates: start: 20101022, end: 20130620
  2. DIANEAL PD4 GLUCOSE 2.27% W/V / 22.7 MG/ML [Suspect]
     Indication: PERITONEAL DIALYSIS
     Route: 033
     Dates: start: 20101022, end: 20130620
  3. FUROSEMIDE [Concomitant]
     Indication: PRODUCT USED FOR UNKNOWN INDICATION
     Route: 048
     Dates: start: 20130325
  4. FUROSEMIDE [Concomitant]
     Route: 048
     Dates: start: 20130325
  5. ALPHACALCIDOL [Concomitant]
     Indication: PRODUCT USED FOR UNKNOWN INDICATION
     Route: 048
     Dates: start: 20120625
  6. ALPHACALCIDOL [Concomitant]
     Route: 048
     Dates: start: 20120625
  7. ASPIRIN [Concomitant]
     Indication: PRODUCT USED FOR UNKNOWN INDICATION
     Route: 048
     Dates: start: 20080924
  8. ATENOLOL [Concomitant]
     Indication: PRODUCT USED FOR UNKNOWN INDICATION
     Route: 048
     Dates: start: 20080924
  9. ENGERIX [Concomitant]
     Indication: PRODUCT USED FOR UNKNOWN INDICATION
     Route: 058
     Dates: start: 20130128
  10. EPREX [Concomitant]
     Indication: PRODUCT USED FOR UNKNOWN INDICATION
     Route: 058
     Dates: start: 20120625
  11. EZETIMIBE [Concomitant]
     Indication: PRODUCT USED FOR UNKNOWN INDICATION
     Dates: start: 20090123
  12. FOLIC ACID [Concomitant]
     Indication: PRODUCT USED FOR UNKNOWN INDICATION
     Route: 048
     Dates: start: 20121029
  13. SODIUM BICARBONATE [Concomitant]
     Indication: PRODUCT USED FOR UNKNOWN INDICATION
     Route: 048
     Dates: start: 20100924
  14. IKOREL [Concomitant]
     Indication: PRODUCT USED FOR UNKNOWN INDICATION
     Route: 048
     Dates: start: 20130128
  15. OMEPRAZOLE [Concomitant]
     Indication: PRODUCT USED FOR UNKNOWN INDICATION
     Route: 048
     Dates: start: 20120903
  16. SEVELAMER HCL [Concomitant]
     Indication: PRODUCT USED FOR UNKNOWN INDICATION
     Route: 048
     Dates: start: 20110627
  17. SEVELAMER HCL [Concomitant]
     Route: 048
     Dates: start: 20110627
  18. SEVELAMER HCL [Concomitant]
     Route: 048
     Dates: start: 20110627
  19. FERROUS GLUCONATE [Concomitant]
     Indication: PRODUCT USED FOR UNKNOWN INDICATION
     Route: 048
     Dates: start: 20080924

REACTIONS (2)
  - Death [Fatal]
  - Circulatory collapse [Unknown]
